FAERS Safety Report 24257694 (Version 1)
Quarter: 2024Q3

REPORT INFORMATION
  Report Type: Spontaneous
  Country: US (occurrence: US)
  Receive Date: 20240828
  Receipt Date: 20240828
  Transmission Date: 20241017
  Serious: No
  Sender: CHIESI
  Company Number: US-CHIESI-2024CHF04338

PATIENT
  Age: 24 Year
  Sex: Male

DRUGS (1)
  1. ELFABRIO [Suspect]
     Active Substance: PEGUNIGALSIDASE ALFA-IWXJ
     Indication: Product used for unknown indication
     Dosage: UNK, QOW
     Route: 042

REACTIONS (6)
  - Migraine [Unknown]
  - Therapeutic response unexpected [Unknown]
  - Hyperhidrosis [Unknown]
  - Gastrointestinal disorder [Unknown]
  - Nausea [Unknown]
  - Pain in extremity [Unknown]
